FAERS Safety Report 7013683-7 (Version None)
Quarter: 2010Q3

REPORT INFORMATION
  Report Type: 
  Country: None (occurrence: None)
  Receive Date: 20100924
  Receipt Date: 20100916
  Transmission Date: 20110219
  Serious: Yes (Other)
  Sender: FDA-Public Use
  Company Number: US-TYCO HEALTHCARE/MALLINCKRODT-T201002026

PATIENT
  Sex: Female

DRUGS (1)
  1. PHOSPHOCOL P32 [Suspect]
     Indication: OVARIAN CANCER
     Dosage: UNK
     Route: 033

REACTIONS (1)
  - INTESTINAL OBSTRUCTION [None]
